FAERS Safety Report 6596276-5 (Version None)
Quarter: 2010Q1

REPORT INFORMATION
  Report Type: 
  Country: None (occurrence: None)
  Receive Date: 20100223
  Receipt Date: 20100210
  Transmission Date: 20100710
  Serious: Yes (Hospitalization)
  Sender: FDA-Public Use
  Company Number: PHHY2008BE31889

PATIENT
  Age: 62 Year
  Sex: Female

DRUGS (16)
  1. CERTICAN [Suspect]
  2. MYCOPHENOLATE MOFETIL [Concomitant]
  3. BISOPROLOL [Concomitant]
  4. HYDROCHLOROTHIAZIDE [Concomitant]
  5. MOXONIDINE [Concomitant]
  6. AMLODIPINE [Concomitant]
  7. METFORMIN HCL [Concomitant]
  8. GLIQUIDONE [Concomitant]
  9. MOLSIDOMINE [Concomitant]
  10. ALFACALCIDOL [Concomitant]
  11. VENLAFAXINE [Concomitant]
  12. TRAMADOL HCL [Concomitant]
  13. LORMETAZEPAM [Concomitant]
  14. DICLOFENAC [Concomitant]
  15. MIRTAZAPINE [Concomitant]
  16. ASPIRIN [Concomitant]

REACTIONS (14)
  - CARDIAC VALVE DISEASE [None]
  - CHEST X-RAY ABNORMAL [None]
  - COUGH [None]
  - CYANOSIS [None]
  - DYSPNOEA [None]
  - LUNG INFILTRATION [None]
  - MECHANICAL VENTILATION [None]
  - OEDEMA PERIPHERAL [None]
  - PLEURAL EFFUSION [None]
  - PULMONARY ALVEOLAR HAEMORRHAGE [None]
  - RALES [None]
  - RESPIRATORY FAILURE [None]
  - VENTRICULAR HYPERTROPHY [None]
  - WHEEZING [None]
